FAERS Safety Report 4401997-6 (Version None)
Quarter: 2004Q3

REPORT INFORMATION
  Report Type: 
  Country: None (occurrence: None)
  Receive Date: 20040719
  Receipt Date: 20040719
  Transmission Date: 20050211
  Serious: No
  Sender: FDA-Public Use
  Company Number: None

PATIENT
  Age: 48 Year
  Sex: Male
  Weight: 87.9978 kg

DRUGS (1)
  1. ELOXATIN [Suspect]
     Indication: PANCREATIC CARCINOMA
     Dosage: 200 MG INTRAVENOUS
     Route: 042
     Dates: start: 20040624, end: 20040624

REACTIONS (3)
  - ERYTHEMA [None]
  - INJECTION SITE EXTRAVASATION [None]
  - OEDEMA PERIPHERAL [None]
